FAERS Safety Report 14627957 (Version 2)
Quarter: 2018Q2

REPORT INFORMATION
  Report Type: Report from Study
  Country: US (occurrence: US)
  Receive Date: 20180312
  Receipt Date: 20180412
  Transmission Date: 20180711
  Serious: Yes (Hospitalization)
  Sender: FDA-Public Use
  Company Number: US-ACTELION-A-US2018-168837

PATIENT
  Age: 29 Year
  Sex: Female
  Weight: 56.69 kg

DRUGS (2)
  1. XARELTO [Concomitant]
     Active Substance: RIVAROXABAN
  2. OPSUMIT [Suspect]
     Active Substance: MACITENTAN
     Indication: PULMONARY HYPERTENSION
     Dosage: 10 MG, QD
     Route: 048
     Dates: start: 201802

REACTIONS (5)
  - Oedema peripheral [Unknown]
  - Hepatomegaly [Unknown]
  - Sickle cell anaemia [Unknown]
  - Arterial stenosis [Unknown]
  - Fluid retention [Unknown]
